FAERS Safety Report 5155124-0 (Version None)
Quarter: 2006Q4

REPORT INFORMATION
  Report Type: 
  Country: None (occurrence: None)
  Receive Date: 20061121
  Receipt Date: 20061107
  Transmission Date: 20070319
  Serious: Yes (Hospitalization, Other)
  Sender: FDA-Public Use
  Company Number: CA-ELI_LILLY_AND_COMPANY-CA200611002934

PATIENT

DRUGS (1)
  1. FORTEO [Suspect]

REACTIONS (3)
  - ARRHYTHMIA [None]
  - CARDIAC DISORDER [None]
  - INJECTION SITE ERYTHEMA [None]
